FAERS Safety Report 10621099 (Version 3)
Quarter: 2015Q4

REPORT INFORMATION
  Report Type: Spontaneous
  Country: US (occurrence: US)
  Receive Date: 20141203
  Receipt Date: 20151126
  Transmission Date: 20160304
  Serious: Yes (Other)
  Sender: FDA-Public Use
  Company Number: US-JNJCP-30000253996

PATIENT
  Age: 58 Year
  Sex: Female
  Weight: 105 kg

DRUGS (5)
  1. JOHNSON^S POWDER [Suspect]
     Active Substance: TALC
     Route: 061
     Dates: start: 198101, end: 200108
  2. SHOWER TO SHOWER TALCUM PRODUCT [Suspect]
     Active Substance: TALC
     Route: 061
     Dates: start: 198101, end: 200108
  3. BENTYL 10MG [Concomitant]
     Indication: ABDOMINAL PAIN
     Dosage: TEN MG, ONE TO TWO CAPSULES ORALLY THREE TIMES A DAY
     Route: 048
     Dates: start: 20131015, end: 20140711
  4. ASPIRIN. [Concomitant]
     Active Substance: ASPIRIN
     Indication: PAIN
  5. NORCO 5MG-325MG [Concomitant]
     Indication: PAIN
     Dosage: 5MG-325MG, ONE TABLET EVERY SIX HOURS WHEN NEEDED
     Route: 048
     Dates: start: 20130606, end: 20131015

REACTIONS (1)
  - Ovarian cancer stage IV [Unknown]

NARRATIVE: CASE EVENT DATE: 20131028
